FAERS Safety Report 24464301 (Version 1)
Quarter: 2024Q4

REPORT INFORMATION
  Report Type: Report from Study
  Country: US (occurrence: US)
  Receive Date: 20241018
  Receipt Date: 20241018
  Transmission Date: 20250115
  Serious: No
  Sender: ROCHE
  Company Number: US-ROCHE-3502378

PATIENT
  Age: 65 Year
  Sex: Female

DRUGS (6)
  1. XOLAIR [Suspect]
     Active Substance: OMALIZUMAB
     Indication: Urticaria
     Dosage: 30 DAYS SUPPLY, ANTICIPATED DATE OF TREATMENT: 30/JAN/2024, LAST DATE OF INJECTION: 02/JAN/2024, STR
     Route: 058
  2. XOLAIR [Suspect]
     Active Substance: OMALIZUMAB
  3. SULFASALAZINE [Concomitant]
     Active Substance: SULFASALAZINE
  4. DOXEPIN [Concomitant]
     Active Substance: DOXEPIN
  5. EPINEPHRINE [Concomitant]
     Active Substance: EPINEPHRINE
  6. PREDNISONE [Concomitant]
     Active Substance: PREDNISONE

REACTIONS (2)
  - Urticaria [Unknown]
  - Injection site reaction [Unknown]
